FAERS Safety Report 9925568 (Version 1)
Quarter: 2014Q1

REPORT INFORMATION
  Report Type: Spontaneous
  Country: US (occurrence: None)
  Receive Date: 20140225
  Receipt Date: 20140225
  Transmission Date: 20141002
  Serious: Yes (Hospitalization)
  Sender: FDA-Public Use
  Company Number: None

PATIENT
  Age: 59 Year
  Sex: Female
  Weight: 89.3 kg

DRUGS (1)
  1. CISPLATIN [Suspect]

REACTIONS (8)
  - Pyelonephritis [None]
  - Urinary tract infection [None]
  - Retroperitoneal lymphadenopathy [None]
  - Vomiting [None]
  - Staphylococcal infection [None]
  - Metastases to lymph nodes [None]
  - Hypophagia [None]
  - Back pain [None]
